FAERS Safety Report 8821697 (Version 1)
Quarter: 2012Q4

REPORT INFORMATION
  Report Type: Report from Study
  Country: US (occurrence: US)
  Receive Date: 20121002
  Receipt Date: 20121002
  Transmission Date: 20130627
  Serious: No
  Sender: FDA-Public Use
  Company Number: US-VERTEX PHARMACEUTICAL INC.-2012-020599

PATIENT
  Age: 59 Year
  Sex: Male

DRUGS (11)
  1. VX-950 [Suspect]
     Indication: HEPATITIS C
     Dosage: 750 mg, tid
     Route: 048
  2. PEGASYS [Suspect]
     Indication: HEPATITIS C
     Dosage: 180 ?g, UNK
  3. RIBAVIRIN [Suspect]
     Indication: HEPATITIS C
     Dosage: 20 mg, UNK
  4. LIPITOR [Concomitant]
     Dosage: 20 mg, UNK
  5. ATENOLOL [Concomitant]
     Dosage: 25 mg, UNK
  6. QUINAPRIL [Concomitant]
     Dosage: 20 mg, UNK
  7. HYDROCHLOROTH [Concomitant]
     Dosage: 25 mg, UNK
  8. ALLOPURINOL [Concomitant]
     Dosage: 100 mg, UNK
  9. ATRIPLA [Concomitant]
     Dosage: 10 mg, UNK
  10. CO Q 10 [Concomitant]
     Dosage: 100 mg, UNK
  11. NORVIR [Concomitant]
     Dosage: 100 mg, UNK

REACTIONS (3)
  - Parosmia [Unknown]
  - Irritability [Unknown]
  - Rash [Unknown]
